FAERS Safety Report 18650337 (Version 3)
Quarter: 2021Q2

REPORT INFORMATION
  Report Type: Spontaneous
  Country: US (occurrence: US)
  Receive Date: 20201222
  Receipt Date: 20210513
  Transmission Date: 20210717
  Serious: Yes (Hospitalization, Other)
  Sender: FDA-Public Use
  Company Number: US-PARI RESPIRATORY EQUIPMENT, INC.-2020PAR00059

PATIENT
  Age: 12 Year
  Sex: Female
  Weight: 33.52 kg

DRUGS (6)
  1. KITABIS PAK [Suspect]
     Active Substance: TOBRAMYCIN
     Indication: CYSTIC FIBROSIS
     Dosage: 300 MG VIA NEBULIZER, 2X/DAY FOR 14 DAYS ON AND 14 DAYS OFF
  2. FERROUS SULFATE. [Concomitant]
     Active Substance: FERROUS SULFATE
  3. EPIDIOLEX [Concomitant]
     Active Substance: CANNABIDIOL
  4. LOW?OGESTEREL [Concomitant]
  5. KITABIS PAK [Suspect]
     Active Substance: TOBRAMYCIN
     Indication: EPILEPSY
  6. KITABIS PAK [Suspect]
     Active Substance: TOBRAMYCIN
     Indication: IDIOPATHIC GENERALISED EPILEPSY

REACTIONS (5)
  - Hospitalisation [Unknown]
  - Viral infection [Unknown]
  - Respiratory distress [Unknown]
  - Off label use [Unknown]
  - Infective pulmonary exacerbation of cystic fibrosis [Unknown]

NARRATIVE: CASE EVENT DATE: 202103
